FAERS Safety Report 4667583-8 (Version None)
Quarter: 2005Q2

REPORT INFORMATION
  Report Type: 
  Country: None (occurrence: None)
  Receive Date: 20050520
  Receipt Date: 20050224
  Transmission Date: 20051028
  Serious: Yes (Disabling, Other)
  Sender: FDA-Public Use
  Company Number: PHEH2005US02474

PATIENT
  Sex: Male
  Weight: 50 kg

DRUGS (1)
  1. AREDIA [Suspect]
     Indication: PROSTATE CANCER METASTATIC
     Dosage: 90 MG, UNK
     Dates: start: 20000101, end: 20020916

REACTIONS (4)
  - BONE DISORDER [None]
  - FISTULA [None]
  - OSTEONECROSIS [None]
  - WOUND DEBRIDEMENT [None]
